FAERS Safety Report 7185189-6 (Version None)
Quarter: 2010Q4

REPORT INFORMATION
  Report Type: 
  Country: None (occurrence: None)
  Receive Date: 20101222
  Receipt Date: 20101207
  Transmission Date: 20110411
  Serious: Yes (Other)
  Sender: FDA-Public Use
  Company Number: US-BAUSCH-2010BL006952

PATIENT
  Age: 18 Year
  Sex: Female

DRUGS (3)
  1. FLUOCINOLONE ACETONIDE [Suspect]
     Indication: IRIDOCYCLITIS
     Route: 047
     Dates: start: 20100804, end: 20101130
  2. ATROPINE [Concomitant]
     Route: 047
  3. PREDNISOLONE ACETATE [Concomitant]
     Route: 047

REACTIONS (6)
  - APHAKIA [None]
  - CYSTOID MACULAR OEDEMA [None]
  - DEVICE BREAKAGE [None]
  - HYPOTONY OF EYE [None]
  - MACULOPATHY [None]
  - VITREOUS HAEMORRHAGE [None]
